FAERS Safety Report 13212590 (Version 2)
Quarter: 2017Q2

REPORT INFORMATION
  Report Type: Report from Study
  Country: US (occurrence: US)
  Receive Date: 20170210
  Receipt Date: 20170405
  Transmission Date: 20170830
  Serious: No
  Sender: FDA-Public Use
  Company Number: GXBR2017US000607

PATIENT
  Sex: Female

DRUGS (2)
  1. OMNITROPE [Suspect]
     Active Substance: SOMATROPIN
     Indication: DWARFISM
     Dosage: 1 MG, QD
     Route: 065
     Dates: start: 201605
  2. SYNTHROID [Concomitant]
     Active Substance: LEVOTHYROXINE SODIUM
     Dosage: UNK DF, UNK
     Route: 065

REACTIONS (2)
  - Incorrect dosage administered [Recovered/Resolved]
  - Drug administered in wrong device [Recovered/Resolved]
